FAERS Safety Report 24711689 (Version 1)
Quarter: 2024Q4

REPORT INFORMATION
  Report Type: Spontaneous
  Country: CN (occurrence: CN)
  Receive Date: 20241209
  Receipt Date: 20241209
  Transmission Date: 20250115
  Serious: Yes (Hospitalization)
  Sender: JOHNSON AND JOHNSON
  Company Number: CN-KENVUE-20241108298

PATIENT
  Sex: Male
  Weight: 8 kg

DRUGS (1)
  1. ACETAMINOPHEN [Suspect]
     Active Substance: ACETAMINOPHEN
     Indication: Pyrexia
     Dosage: 80 MILLIGRAM, ONCE A DAY
     Dates: start: 20241120, end: 20241120

REACTIONS (6)
  - Tachypnoea [Unknown]
  - Cyanosis [Unknown]
  - Glucose-6-phosphate dehydrogenase deficiency [Unknown]
  - Dyspnoea [Recovering/Resolving]
  - Tachycardia [Recovering/Resolving]
  - Adverse event [Recovering/Resolving]

NARRATIVE: CASE EVENT DATE: 20241120
